FAERS Safety Report 6385765-4 (Version None)
Quarter: 2009Q4

REPORT INFORMATION
  Report Type: 
  Country: None (occurrence: None)
  Receive Date: 20091002
  Receipt Date: 20081020
  Transmission Date: 20100525
  Serious: No
  Sender: FDA-Public Use
  Company Number: US-ASTRAZENECA-2008UW20788

PATIENT
  Age: 20340 Day
  Sex: Female
  Weight: 89.4 kg

DRUGS (13)
  1. ARIMIDEX [Suspect]
     Indication: BREAST CANCER
     Route: 048
  2. VITAMIN D [Concomitant]
  3. CALCIUM [Concomitant]
  4. VITAMIN B6 [Concomitant]
  5. VITAMIN B-12 [Concomitant]
  6. MULTI-VITAMIN [Concomitant]
  7. VICODIN [Concomitant]
  8. DARVOCET [Concomitant]
  9. ADVIL [Concomitant]
  10. HERCEPTIN [Concomitant]
  11. ATENOLOL [Concomitant]
  12. GLUCOSAMINE [Concomitant]
  13. ASPIRIN [Concomitant]

REACTIONS (6)
  - BONE PAIN [None]
  - HOT FLUSH [None]
  - HYPOAESTHESIA [None]
  - MUSCULAR WEAKNESS [None]
  - MYALGIA [None]
  - SKIN DISCOLOURATION [None]
